FAERS Safety Report 7700878-X (Version None)
Quarter: 2011Q3

REPORT INFORMATION
  Report Type: 
  Country: None (occurrence: None)
  Receive Date: 20110822
  Receipt Date: 20110817
  Transmission Date: 20111222
  Serious: Yes (Other)
  Sender: FDA-Public Use
  Company Number: PHHY2011DE73719

PATIENT
  Sex: Female

DRUGS (6)
  1. ERGOCRISTINE PHOSPHATE [Suspect]
     Route: 048
  2. METHYLERGOMETRINE MALEATE [Suspect]
     Indication: CAESAREAN SECTION
     Dosage: 0.2 MG, UNK
  3. OXYTOCIN [Suspect]
     Dosage: 3 IU, UNK
  4. OXYTOCIN [Suspect]
     Dosage: 10 IU, UNK
  5. OXYTOCIN [Suspect]
     Dosage: 10 IU, ON FIRST AND SECOND DAY OF GIVING BIRTH
  6. ERGOMETRINE [Suspect]
     Route: 048

REACTIONS (3)
  - CEREBROVASCULAR SPASM [None]
  - HEMIPARESIS [None]
  - ERGOT POISONING [None]
